FAERS Safety Report 13636529 (Version 1)
Quarter: 2017Q2

REPORT INFORMATION
  Report Type: Spontaneous
  Country: US (occurrence: US)
  Receive Date: 20170608
  Receipt Date: 20170608
  Transmission Date: 20170830
  Serious: No
  Sender: FDA-Public Use
  Company Number: None

PATIENT
  Age: 54 Year
  Sex: Male

DRUGS (1)
  1. HARVONI [Suspect]
     Active Substance: LEDIPASVIR\SOFOSBUVIR
     Route: 048
     Dates: start: 20170509, end: 20170608

REACTIONS (3)
  - Decreased appetite [None]
  - Influenza like illness [None]
  - Drug dose omission [None]

NARRATIVE: CASE EVENT DATE: 20170509
